FAERS Safety Report 8496499-4 (Version None)
Quarter: 2012Q2

REPORT INFORMATION
  Report Type: 
  Country: None (occurrence: None)
  Receive Date: 20120629
  Receipt Date: 20120624
  Transmission Date: 20120825
  Serious: Yes (Congenital Anomaly, Other)
  Sender: FDA-Public Use
  Company Number: DE-DEXPHARM-20120754

PATIENT
  Sex: Male

DRUGS (8)
  1. DEXAMETHASONE [Concomitant]
  2. FOLSAURE [Concomitant]
  3. IMMUNE GLOBULIN (HUMAN) [Suspect]
     Indication: IDIOPATHIC THROMBOCYTOPENIC PURPURA
     Dosage: TRANSPLACENTAL
     Route: 064
     Dates: start: 20100312, end: 20100314
  4. RITUXIMAB [Suspect]
     Indication: IDIOPATHIC THROMBOCYTOPENIC PURPURA
     Dosage: 800 [MG/D]/ON JAN. THE 24TH: 800MG, THE OTHER 3 TIMES 700MG TRANSPLACENTAL
     Route: 064
     Dates: start: 20100124, end: 20100215
  5. PREDNISONE [Concomitant]
  6. PROTAPHANE [Concomitant]
  7. OMEPRAZOLE [Suspect]
     Indication: GASTRITIS PROPHYLAXIS
     Dosage: 20 [MG/D] TRANSPLACENTAL
     Route: 064
     Dates: start: 20100312, end: 20100314
  8. PREDNISONE TAB [Concomitant]

REACTIONS (8)
  - VENTRICULAR SEPTAL DEFECT [None]
  - FOETAL MACROSOMIA [None]
  - NEONATAL RESPIRATORY DISTRESS SYNDROME [None]
  - MATERNAL DRUGS AFFECTING FOETUS [None]
  - PREMATURE BABY [None]
  - B-LYMPHOCYTE COUNT DECREASED [None]
  - CAESAREAN SECTION [None]
  - APGAR SCORE LOW [None]
